FAERS Safety Report 10670993 (Version 2)
Quarter: 2014Q4

REPORT INFORMATION
  Report Type: Spontaneous
  Country: US (occurrence: US)
  Receive Date: 20141223
  Receipt Date: 20141223
  Transmission Date: 20150529
  Serious: No
  Sender: FDA-Public Use
  Company Number: US-TEVA-487319USA

PATIENT
  Sex: Male

DRUGS (2)
  1. INSULIN [Concomitant]
     Active Substance: INSULIN NOS
     Indication: DIABETES MELLITUS
  2. LOVASTATIN. [Suspect]
     Active Substance: LOVASTATIN
     Dosage: 20 MILLIGRAM DAILY;
     Dates: start: 201404, end: 20140604

REACTIONS (2)
  - Sciatica [Unknown]
  - Arthralgia [Unknown]
